FAERS Safety Report 15006842 (Version 1)
Quarter: 2018Q2

REPORT INFORMATION
  Report Type: Spontaneous
  Country: US (occurrence: US)
  Receive Date: 20180613
  Receipt Date: 20180613
  Transmission Date: 20180711
  Serious: Yes (Hospitalization)
  Sender: FDA-Public Use
  Company Number: US-FRESENIUS KABI-FK201806821

PATIENT
  Age: 65 Year
  Sex: Female

DRUGS (2)
  1. NEOSTIGMINE (MANUFACTURER UNKNOWN) (NEOSTIGMINE METILSULFATE) [Suspect]
     Active Substance: NEOSTIGMINE METHYLSULFATE
     Indication: POSTOPERATIVE ILEUS
     Route: 058
  2. NEOSTIGMINE (MANUFACTURER UNKNOWN) (NEOSTIGMINE METHYLSULFATE) [Suspect]
     Active Substance: NEOSTIGMINE METHYLSULFATE
     Dosage: UNKNOWN
     Route: 065

REACTIONS (1)
  - Anastomotic leak [Recovered/Resolved]
